FAERS Safety Report 4997375-1 (Version None)
Quarter: 2006Q1

REPORT INFORMATION
  Report Type: 
  Country: None (occurrence: None)
  Receive Date: 20060315
  Receipt Date: 20060113
  Transmission Date: 20060701
  Serious: Yes (Other)
  Sender: FDA-Public Use
  Company Number: 432325

PATIENT
  Sex: Female

DRUGS (1)
  1. BONIVA [Suspect]
     Dosage: 1 DOSE FORM ORAL
     Route: 048
     Dates: start: 20051106, end: 20051115

REACTIONS (2)
  - COUGH [None]
  - OSTEOARTHRITIS [None]
